FAERS Safety Report 7212343-7 (Version None)
Quarter: 2011Q1

REPORT INFORMATION
  Report Type: 
  Country: None (occurrence: None)
  Receive Date: 20110106
  Receipt Date: 20101224
  Transmission Date: 20110831
  Serious: Yes (Hospitalization, Other)
  Sender: FDA-Public Use
  Company Number: US-BRISTOL-MYERS SQUIBB COMPANY-15462773

PATIENT
  Age: 56 Year
  Sex: Male

DRUGS (7)
  1. CELEXA [Concomitant]
     Indication: DEPRESSION
  2. TRUVADA [Suspect]
     Indication: HIV INFECTION
     Dates: start: 20080101
  3. DARUNAVIR [Suspect]
     Indication: HIV INFECTION
     Dates: start: 20090501
  4. RALTEGRAVIR [Suspect]
     Indication: HIV INFECTION
     Dates: start: 20090501
  5. VALTREX [Concomitant]
     Indication: GENITAL HERPES
  6. RITONAVIR [Suspect]
     Indication: HIV INFECTION
     Dates: start: 20080101
  7. ATAZANAVIR [Suspect]
     Indication: HIV INFECTION
     Dates: start: 20080101, end: 20090501

REACTIONS (2)
  - VIROLOGIC FAILURE [None]
  - RENAL FAILURE ACUTE [None]
